FAERS Safety Report 5163318-3 (Version None)
Quarter: 2006Q4

REPORT INFORMATION
  Report Type: 
  Country: None (occurrence: None)
  Receive Date: 20061121
  Receipt Date: 20061108
  Transmission Date: 20070319
  Serious: Yes (Death, Hospitalization)
  Sender: FDA-Public Use
  Company Number: 2006BI016330

PATIENT
  Age: 49 Year
  Sex: Male

DRUGS (3)
  1. NATALIZUMAB [Suspect]
     Indication: MULTIPLE SCLEROSIS
     Dosage: 300 MG;QM;IV
     Route: 042
     Dates: start: 20050101, end: 20050301
  2. COPAXONE [Concomitant]
  3. MARINOL [Concomitant]

REACTIONS (9)
  - ANOXIC ENCEPHALOPATHY [None]
  - COMA [None]
  - DEPRESSED LEVEL OF CONSCIOUSNESS [None]
  - GRAND MAL CONVULSION [None]
  - HYPERSENSITIVITY [None]
  - INFECTION [None]
  - MULTIPLE SCLEROSIS [None]
  - PNEUMONIA [None]
  - URTICARIA [None]
